FAERS Safety Report 14728190 (Version 1)
Quarter: 2018Q2

REPORT INFORMATION
  Report Type: Spontaneous
  Country: ES (occurrence: ES)
  Receive Date: 20180406
  Receipt Date: 20180406
  Transmission Date: 20180711
  Serious: Yes (Other)
  Sender: FDA-Public Use
  Company Number: ES-TEVA-2018-ES-876564

PATIENT
  Age: 86 Year
  Sex: Female

DRUGS (2)
  1. AMIODARONA (392A) [Interacting]
     Active Substance: AMIODARONE
     Indication: ATRIAL FIBRILLATION
     Dosage: 200MG ONCE A DAY
     Route: 048
     Dates: start: 20180109
  2. BISOPROLOL (2328A) [Suspect]
     Active Substance: BISOPROLOL
     Indication: ATRIAL FIBRILLATION
     Dosage: 2.5 MG EVERY 12 HOURS
     Route: 048
     Dates: start: 20180109, end: 20180112

REACTIONS (3)
  - Medication error [Recovered/Resolved]
  - Bradycardia [Recovered/Resolved]
  - Drug interaction [Unknown]

NARRATIVE: CASE EVENT DATE: 20180109
